FAERS Safety Report 25459418 (Version 1)
Quarter: 2025Q2

REPORT INFORMATION
  Report Type: Spontaneous
  Country: CN (occurrence: CN)
  Receive Date: 20250620
  Receipt Date: 20250620
  Transmission Date: 20250716
  Serious: Yes (Hospitalization)
  Sender: JOHNSON AND JOHNSON
  Company Number: CN-JNJFOC-20250619166

PATIENT
  Age: 32 Year
  Sex: Male
  Weight: 70 kg

DRUGS (3)
  1. TOPAMAX [Suspect]
     Active Substance: TOPIRAMATE
     Indication: Gambling disorder
     Route: 048
     Dates: start: 20250513, end: 20250604
  2. BICTEGRAVIR SODIUM [Suspect]
     Active Substance: BICTEGRAVIR SODIUM
     Indication: HIV infection
     Route: 048
     Dates: start: 20250520, end: 20250613
  3. EMTRICITABINE\TENOFOVIR ALAFENAMIDE FUMARATE [Suspect]
     Active Substance: EMTRICITABINE\TENOFOVIR ALAFENAMIDE FUMARATE
     Indication: HIV infection
     Route: 048
     Dates: start: 20250512, end: 20250613

REACTIONS (5)
  - Hepatic function abnormal [Unknown]
  - Gambling disorder [Unknown]
  - Affect lability [Unknown]
  - Abnormal behaviour [Unknown]
  - Off label use [Unknown]
